FAERS Safety Report 13339276 (Version 1)
Quarter: 2017Q1

REPORT INFORMATION
  Report Type: Spontaneous
  Country: GB (occurrence: GB)
  Receive Date: 20170315
  Receipt Date: 20170315
  Transmission Date: 20170428
  Serious: Yes (Hospitalization, Other)
  Sender: FDA-Public Use
  Company Number: GB-MYLANLABS-2017M1014695

PATIENT

DRUGS (14)
  1. GABAPENTIN. [Suspect]
     Active Substance: GABAPENTIN
     Indication: NEURALGIA
     Dosage: 300 MG, TID
     Route: 065
     Dates: start: 201608
  2. FLUTICASONE. [Concomitant]
     Active Substance: FLUTICASONE
     Indication: BRONCHIECTASIS
     Dosage: START: OVER 10 YEARS
  3. CIDOMYCIN [Suspect]
     Active Substance: GENTAMICIN SULFATE
     Indication: INHALATION THERAPY
     Dosage: 80 MG, BID
     Route: 065
  4. TAMSULOSIN [Concomitant]
     Active Substance: TAMSULOSIN
     Indication: PROSTATOMEGALY
     Dosage: START: OVER 10 YEARS
  5. CIDOMYCIN [Suspect]
     Active Substance: GENTAMICIN SULFATE
     Indication: BRONCHIECTASIS
     Dosage: 80 MG, BID
     Route: 065
  6. RANITIDINE. [Concomitant]
     Active Substance: RANITIDINE
     Indication: GASTROOESOPHAGEAL REFLUX DISEASE
     Dosage: START: OVER 10 YEARS
  7. IPRATROPIUM [Concomitant]
     Active Substance: IPRATROPIUM
     Indication: BRONCHIECTASIS
     Dosage: DOSE:500 MICRO G START: OVER 10 YEARS
  8. SALMETEROL [Concomitant]
     Active Substance: SALMETEROL
     Indication: BRONCHIECTASIS
     Dosage: START: OVER 10 YEARS
  9. FLECAINIDE [Concomitant]
     Active Substance: FLECAINIDE
     Indication: CARDIAC DISORDER
     Dosage: START: OVER 2 YEARS
  10. FLIXONASE [Concomitant]
     Active Substance: FLUTICASONE PROPIONATE
     Indication: BRONCHIECTASIS
     Dosage: 50 MG, BID
  11. SALBUTAMOL [Concomitant]
     Active Substance: ALBUTEROL
     Indication: BRONCHIECTASIS
     Dosage: START: OVER 10 YEARS
  12. DILTIAZEM. [Suspect]
     Active Substance: DILTIAZEM
     Indication: CARDIAC DISORDER
     Dosage: 60 MG, BID
     Route: 065
  13. LANSOPRAZOLE. [Concomitant]
     Active Substance: LANSOPRAZOLE
     Indication: GASTROOESOPHAGEAL REFLUX DISEASE
     Dosage: START: OVER 10 YEARS
  14. WARFARIN [Concomitant]
     Active Substance: WARFARIN
     Indication: CARDIAC DISORDER
     Dosage: START: OVER 5 YEARS

REACTIONS (18)
  - Atrial fibrillation [Not Recovered/Not Resolved]
  - Depression [Not Recovered/Not Resolved]
  - Somnolence [Not Recovered/Not Resolved]
  - Confusional state [Not Recovered/Not Resolved]
  - Intentional product use issue [Unknown]
  - Dizziness [Not Recovered/Not Resolved]
  - Chest discomfort [Not Recovered/Not Resolved]
  - Fungal infection [Not Recovered/Not Resolved]
  - Neuralgia [Not Recovered/Not Resolved]
  - Primary cough headache [Not Recovered/Not Resolved]
  - Tension [Not Recovered/Not Resolved]
  - Gait disturbance [Not Recovered/Not Resolved]
  - Lower respiratory tract infection [Not Recovered/Not Resolved]
  - Anxiety [Not Recovered/Not Resolved]
  - Dyspnoea [Not Recovered/Not Resolved]
  - Fatigue [Not Recovered/Not Resolved]
  - Tearfulness [Not Recovered/Not Resolved]
  - Somnolence [Not Recovered/Not Resolved]

NARRATIVE: CASE EVENT DATE: 2015
